FAERS Safety Report 5695084-7 (Version None)
Quarter: 2008Q2

REPORT INFORMATION
  Report Type: 
  Country: None (occurrence: None)
  Receive Date: 20080404
  Receipt Date: 20080324
  Transmission Date: 20081010
  Serious: Yes (Other)
  Sender: FDA-Public Use
  Company Number: US-PFIZER INC-2008027351

PATIENT
  Sex: Male
  Weight: 108.9 kg

DRUGS (9)
  1. CHANTIX [Suspect]
     Indication: SMOKING CESSATION THERAPY
     Dates: start: 20080104, end: 20080201
  2. METHADONE HCL [Concomitant]
  3. LYRICA [Concomitant]
  4. NORCO [Concomitant]
     Dosage: TEXT:PRN TWICE DAILY
  5. OXYCODONE HCL [Concomitant]
  6. METFORMIN HCL [Concomitant]
     Indication: DIABETES MELLITUS
  7. VYTORIN [Concomitant]
     Indication: BLOOD CHOLESTEROL INCREASED
  8. ACIPHEX [Concomitant]
     Indication: GASTROOESOPHAGEAL REFLUX DISEASE
  9. CYMBALTA [Concomitant]
     Indication: DEPRESSION

REACTIONS (8)
  - CONFUSIONAL STATE [None]
  - CONSTIPATION [None]
  - DISORIENTATION [None]
  - INSOMNIA [None]
  - MAJOR DEPRESSION [None]
  - MOOD ALTERED [None]
  - NIGHT SWEATS [None]
  - WEIGHT INCREASED [None]
